FAERS Safety Report 8214791-5 (Version None)
Quarter: 2012Q1

REPORT INFORMATION
  Report Type: 
  Country: None (occurrence: None)
  Receive Date: 20120316
  Receipt Date: 20120306
  Transmission Date: 20120608
  Serious: Yes (Hospitalization)
  Sender: FDA-Public Use
  Company Number: US-BRISTOL-MYERS SQUIBB COMPANY-16349508

PATIENT
  Age: 68 Year
  Sex: Female

DRUGS (31)
  1. CALCIUM [Concomitant]
     Indication: SUPPLEMENTATION THERAPY
     Dosage: 1DF: 1TAB
     Route: 048
  2. XALATAN [Concomitant]
     Indication: GLAUCOMA
     Route: 047
  3. MARINOL [Concomitant]
     Indication: NAUSEA
     Route: 048
  4. PHENERGAN [Concomitant]
     Indication: NAUSEA
     Dosage: Q8HR,1 APPLICATION
  5. SCOPOLAMINE [Concomitant]
     Indication: NAUSEA
     Dosage: 1 DF: 1 PATCH
  6. ASPIRIN [Concomitant]
     Indication: PROPHYLAXIS
     Dosage: AT BEDTIME TABS
     Route: 048
  7. CLONAZEPAM [Concomitant]
     Indication: ANXIETY
     Dosage: TAB
     Route: 048
  8. DIOVAN [Concomitant]
     Indication: HYPERTENSION
     Dosage: TABS
     Route: 048
  9. TIMOLOL MALEATE [Concomitant]
     Indication: GLAUCOMA
     Route: 047
  10. DASATINIB [Suspect]
     Indication: NON-SMALL CELL LUNG CANCER
     Dosage: 1TAB BEF OR 2 HRS AFT MEAL,INTD 06JAN12,RESD 20JAN; RECD TIL 04MAR, 20MG:1G67348,50:1A71387,1H55827
     Route: 048
     Dates: start: 20111202
  11. EFFEXOR XR [Concomitant]
     Indication: DEPRESSION
     Dosage: TABS MORNING
     Route: 048
  12. HYDROCHLOROTHIAZIDE [Concomitant]
     Indication: HYPERTENSION
     Route: 048
  13. MULTI-VITAMIN [Concomitant]
     Indication: SUPPLEMENTATION THERAPY
     Dosage: 1DF: 1TAB
     Route: 048
  14. TYLENOL [Concomitant]
     Indication: HEADACHE
     Route: 048
  15. MARINOL [Concomitant]
     Indication: VOMITING
     Route: 048
  16. SCOPOLAMINE [Concomitant]
     Indication: VOMITING
     Dosage: 1 DF: 1 PATCH
  17. ERLOTINIB HYDROCHLORIDE [Suspect]
     Indication: NON-SMALL CELL LUNG CANCER
     Dosage: 1 TAB BEF OR 2 HRS AFTR MEAL,INTERRUPTED ON 06JAN2012,RESTARTED ON 20JAN12; RECEIVED TIL 04MAR12
     Route: 048
     Dates: start: 20111202
  18. FISH OIL [Concomitant]
     Indication: SUPPLEMENTATION THERAPY
     Dosage: AT BEDTIME TABS
     Route: 048
  19. NORVASC [Concomitant]
     Indication: HYPERTENSION
     Dosage: IN MORNING 1 TAB
     Route: 048
  20. TOPROL-XL [Concomitant]
     Indication: HYPERTENSION
     Route: 048
  21. ZETIA [Concomitant]
     Indication: BLOOD CHOLESTEROL
     Dosage: AT BEDTIME
     Route: 048
  22. REGLAN [Concomitant]
     Indication: VOMITING
     Route: 048
  23. REGLAN [Concomitant]
     Indication: NAUSEA
     Route: 048
  24. TYLENOL [Concomitant]
     Indication: PAIN
     Route: 048
  25. ONDANSETRON HCL [Concomitant]
     Indication: VOMITING
     Dosage: 1 TAB
     Route: 048
  26. EVISTA [Concomitant]
     Indication: OSTEOPOROSIS
     Dosage: TABS,
     Route: 048
  27. LOMOTIL [Concomitant]
     Dosage: 1DF:2TAB
     Route: 048
  28. SIMVASTATIN [Concomitant]
     Indication: BLOOD CHOLESTEROL
     Dosage: AT BEDTIME
     Route: 048
  29. ONDANSETRON HCL [Concomitant]
     Indication: NAUSEA
     Dosage: 1 TAB
     Route: 048
  30. PREVACID [Concomitant]
     Indication: GASTROOESOPHAGEAL REFLUX DISEASE
     Dosage: TAB AT BEDTIME
     Route: 048
  31. PHENERGAN [Concomitant]
     Indication: VOMITING
     Dosage: Q8HR,1 APPLICATION

REACTIONS (3)
  - DYSPNOEA [None]
  - RESPIRATORY FAILURE [None]
  - MALIGNANT PLEURAL EFFUSION [None]
